FAERS Safety Report 8442579-9 (Version None)
Quarter: 2012Q2

REPORT INFORMATION
  Report Type: 
  Country: None (occurrence: None)
  Receive Date: 20120615
  Receipt Date: 20120608
  Transmission Date: 20120825
  Serious: Yes (Hospitalization)
  Sender: FDA-Public Use
  Company Number: AU-B.I. PHARMACEUTICALS,INC./RIDGEFIELD-2012-AU-01003AU

PATIENT
  Sex: Female
  Weight: 73 kg

DRUGS (5)
  1. TEGRETOL [Concomitant]
     Dates: start: 20040101
  2. METFORMIN HCL [Concomitant]
     Dates: start: 20040101
  3. ABILIFY [Concomitant]
     Dates: start: 20040101
  4. TWYNSTA [Suspect]
     Indication: HYPERTENSION
     Dosage: 80/5
     Dates: start: 20120509, end: 20120523
  5. LYRICA [Concomitant]
     Dates: start: 20040101

REACTIONS (6)
  - HYPOKALAEMIA [None]
  - BALANCE DISORDER [None]
  - DYSARTHRIA [None]
  - VOMITING [None]
  - ABASIA [None]
  - HYPONATRAEMIA [None]
